FAERS Safety Report 11257897 (Version 2)
Quarter: 2015Q3

REPORT INFORMATION
  Report Type: Spontaneous
  Country: US (occurrence: US)
  Receive Date: 20150710
  Receipt Date: 20150807
  Transmission Date: 20151125
  Serious: No
  Sender: FDA-Public Use
  Company Number: US-009507513-1507USA001619

PATIENT
  Age: 22 Year
  Sex: Female

DRUGS (4)
  1. RAGWITEK [Suspect]
     Active Substance: AMBROSIA ARTEMISIIFOLIA POLLEN
     Dosage: ONE IN THE MORNING , ONE IN  THE EVENING
     Route: 060
     Dates: start: 20150622, end: 20150622
  2. RAGWITEK [Suspect]
     Active Substance: AMBROSIA ARTEMISIIFOLIA POLLEN
     Dosage: UNK
     Route: 060
     Dates: start: 20150630
  3. RAGWITEK [Suspect]
     Active Substance: AMBROSIA ARTEMISIIFOLIA POLLEN
     Indication: ALLERGY PROPHYLAXIS
     Dosage: 1 TABLET, QD
     Route: 060
     Dates: start: 201506, end: 20150621
  4. SYNTHROID [Concomitant]
     Active Substance: LEVOTHYROXINE SODIUM
     Dosage: UNK

REACTIONS (3)
  - Swollen tongue [Recovered/Resolved]
  - Oral pruritus [Recovered/Resolved]
  - Accidental overdose [Unknown]

NARRATIVE: CASE EVENT DATE: 201506
